FAERS Safety Report 6656057-0 (Version None)
Quarter: 2010Q1

REPORT INFORMATION
  Report Type: 
  Country: None (occurrence: None)
  Receive Date: 20100329
  Receipt Date: 20100326
  Transmission Date: 20100710
  Serious: Yes (Other)
  Sender: FDA-Public Use
  Company Number: A0842999A

PATIENT
  Age: 63 Year
  Sex: Male

DRUGS (4)
  1. ADVAIR DISKUS 100/50 [Suspect]
     Indication: RESPIRATORY DISORDER
     Route: 055
     Dates: start: 20070101
  2. JANUVIA [Concomitant]
  3. LIPITOR [Concomitant]
  4. TEKTURNA [Concomitant]

REACTIONS (2)
  - EYE DISORDER [None]
  - RETINAL DETACHMENT [None]
